FAERS Safety Report 5209228-4 (Version None)
Quarter: 2007Q1

REPORT INFORMATION
  Report Type: 
  Country: None (occurrence: None)
  Receive Date: 20070116
  Receipt Date: 20070110
  Transmission Date: 20070707
  Serious: Yes (Other)
  Sender: FDA-Public Use
  Company Number: AU-ROCHE-477875

PATIENT
  Age: 32 Year
  Sex: Female

DRUGS (1)
  1. ROACCUTANE [Suspect]
     Route: 065
     Dates: start: 20060115, end: 20060215

REACTIONS (3)
  - ALOPECIA [None]
  - DEPRESSION [None]
  - SUICIDAL IDEATION [None]
